FAERS Safety Report 8677174 (Version 2)
Quarter: 2013Q4

REPORT INFORMATION
  Report Type: Spontaneous
  Country: GB (occurrence: GB)
  Receive Date: 20120723
  Receipt Date: 20131101
  Transmission Date: 20140711
  Serious: Yes (Hospitalization)
  Sender: FDA-Public Use
  Company Number: GB-009507513-1207GBR001621

PATIENT
  Age: 40 Year
  Sex: Male
  Weight: 85 kg

DRUGS (5)
  1. MIRTAZAPINE [Suspect]
     Dosage: UNK
     Dates: start: 20120418
  2. IBUPROFEN [Concomitant]
     Dosage: UNK
     Dates: start: 20120229, end: 20120530
  3. IBUPROFEN [Concomitant]
     Dosage: UNK
     Dates: start: 20120612, end: 20120616
  4. PROPRANOLOL HYDROCHLORIDE [Concomitant]
     Dosage: UNK
     Dates: start: 20120229, end: 20120419
  5. SERTRALINE HYDROCHLORIDE [Concomitant]
     Dosage: UNK
     Dates: start: 20120307, end: 20120404

REACTIONS (3)
  - Brain oedema [Unknown]
  - Convulsion [Unknown]
  - Hyponatraemia [Unknown]
